FAERS Safety Report 10640329 (Version 3)
Quarter: 2017Q1

REPORT INFORMATION
  Report Type: Spontaneous
  Country: US (occurrence: US)
  Receive Date: 20141209
  Receipt Date: 20170302
  Transmission Date: 20170428
  Serious: Yes (Life-Threatening, Other)
  Sender: FDA-Public Use
  Company Number: US-ELI_LILLY_AND_COMPANY-US201412001382

PATIENT
  Age: 47 Year
  Sex: Female
  Weight: 83.9 kg

DRUGS (3)
  1. CYMBALTA [Suspect]
     Active Substance: DULOXETINE HYDROCHLORIDE
     Indication: DEPRESSION
     Dosage: 60 MG, QD
     Route: 048
     Dates: start: 201208
  2. CYMBALTA [Suspect]
     Active Substance: DULOXETINE HYDROCHLORIDE
     Indication: FIBROMYALGIA
     Dosage: 30 MG, QD
     Route: 048
  3. CYMBALTA [Suspect]
     Active Substance: DULOXETINE HYDROCHLORIDE
     Indication: PAIN
     Dosage: 30 MG, BID
     Route: 048
     Dates: end: 20140419

REACTIONS (25)
  - Palpitations [Unknown]
  - Confusional state [Unknown]
  - Withdrawal syndrome [Unknown]
  - Irritability [Unknown]
  - Intentional product misuse [Unknown]
  - Anxiety [Unknown]
  - Sensory disturbance [Unknown]
  - Dysphoria [Unknown]
  - Agoraphobia [Unknown]
  - Paraesthesia [Unknown]
  - Affect lability [Unknown]
  - Suicidal ideation [Recovered/Resolved]
  - Vision blurred [Unknown]
  - Headache [Unknown]
  - Dizziness [Unknown]
  - Fatigue [Unknown]
  - Lethargy [Unknown]
  - Vertigo [Unknown]
  - Amnesia [Unknown]
  - Nausea [Unknown]
  - Sleep disorder [Unknown]
  - Tinnitus [Unknown]
  - Mood altered [Unknown]
  - Agitation [Unknown]
  - Pain [Unknown]

NARRATIVE: CASE EVENT DATE: 20140419
